FAERS Safety Report 17758431 (Version 3)
Quarter: 2020Q4

REPORT INFORMATION
  Report Type: Report from Study
  Country: US (occurrence: US)
  Receive Date: 20200507
  Receipt Date: 20201019
  Transmission Date: 20210113
  Serious: Yes (Life-Threatening, Hospitalization)
  Sender: FDA-Public Use
  Company Number: US-GILEAD-2020-0460626

PATIENT
  Age: 66 Year
  Sex: Female
  Weight: 126 kg

DRUGS (19)
  1. LEVOTHYROXINE. [Concomitant]
     Active Substance: LEVOTHYROXINE
     Dosage: 75,UG,DAILY
     Route: 048
     Dates: start: 20170815
  2. LEVOFLOXACIN. [Concomitant]
     Active Substance: LEVOFLOXACIN
     Dosage: 750,MG,DAILY
     Route: 048
     Dates: start: 20200318, end: 20200322
  3. FLUDARABINE [Suspect]
     Active Substance: FLUDARABINE PHOSPHATE
     Indication: BONE MARROW CONDITIONING REGIMEN
     Dosage: 30
     Route: 042
     Dates: start: 20180328, end: 20180329
  4. MAGNESIUM OXIDE. [Concomitant]
     Active Substance: MAGNESIUM OXIDE
     Dosage: 500-800,MG,DAILY
     Route: 048
     Dates: start: 20180305
  5. METFORMIN [Concomitant]
     Active Substance: METFORMIN HYDROCHLORIDE
     Dosage: 1000,MG,TWICE DAILY
     Route: 048
     Dates: start: 20181010
  6. LEVOFLOXACIN. [Concomitant]
     Active Substance: LEVOFLOXACIN
     Dosage: 750,MG,DAILY
     Route: 048
     Dates: start: 20200325, end: 20200329
  7. VALACYCLOVIR [Concomitant]
     Active Substance: VALACYCLOVIR HYDROCHLORIDE
     Dosage: 500,MG,DAILY
     Route: 048
     Dates: start: 20130405
  8. IVIGLOB EX [Concomitant]
     Active Substance: HUMAN IMMUNOGLOBULIN G
     Dosage: 400,OTHER,MONTHLY
     Route: 041
     Dates: start: 20190426
  9. FLUDARABINE [Suspect]
     Active Substance: FLUDARABINE PHOSPHATE
     Dosage: 30
     Route: 042
     Dates: start: 20180914, end: 20180916
  10. MESNA. [Suspect]
     Active Substance: MESNA
     Indication: PROPHYLAXIS
     Dosage: 500
     Route: 042
     Dates: start: 20180328, end: 20180330
  11. MESNA. [Suspect]
     Active Substance: MESNA
     Dosage: 500
     Route: 042
     Dates: start: 20180914, end: 20180917
  12. OXYGEN. [Concomitant]
     Active Substance: OXYGEN
     Dosage: 4,OTHER,AS NECESSARY
     Dates: start: 20180919
  13. CYCLOPHOSPHAMIDE. [Suspect]
     Active Substance: CYCLOPHOSPHAMIDE
     Indication: BONE MARROW CONDITIONING REGIMEN
     Dosage: 500
     Route: 042
     Dates: start: 20180328, end: 20180329
  14. CYCLOPHOSPHAMIDE. [Suspect]
     Active Substance: CYCLOPHOSPHAMIDE
     Dosage: 500
     Route: 042
     Dates: start: 20180914, end: 20180916
  15. ALBUTEROL [SALBUTAMOL] [Concomitant]
     Active Substance: ALBUTEROL
     Dosage: 2,OTHER,FOUR TIMES DAILY
     Route: 045
     Dates: start: 20130319
  16. AXICABTAGENE CILOLEUCEL [Suspect]
     Active Substance: AXICABTAGENE CILOLEUCEL
     Indication: NON-HODGKIN^S LYMPHOMA
     Dosage: 1 DOSAGE FORM, ONCE
     Route: 042
     Dates: start: 20180919, end: 20180919
  17. MULTIVITAMINS [VITAMINS NOS] [Concomitant]
     Active Substance: VITAMINS
     Dosage: 1,OTHER,DAILY
     Route: 048
     Dates: start: 20110606
  18. ATORVASTATIN [Concomitant]
     Active Substance: ATORVASTATIN
     Dosage: 20,MG,DAILY
     Route: 048
     Dates: start: 20180302
  19. BUDESONIDE;FORMOTEROL [Concomitant]
     Active Substance: BUDESONIDE\FORMOTEROL
     Dosage: 2,OTHER,TWICE DAILY
     Route: 055
     Dates: start: 20180915

REACTIONS (3)
  - Pneumonia streptococcal [Recovered/Resolved]
  - Sepsis [Recovered/Resolved]
  - Respiratory failure [Recovered/Resolved]

NARRATIVE: CASE EVENT DATE: 20200404
